FAERS Safety Report 8295270-6 (Version None)
Quarter: 2012Q2

REPORT INFORMATION
  Report Type: 
  Country: None (occurrence: None)
  Receive Date: 20120418
  Receipt Date: 20120413
  Transmission Date: 20120825
  Serious: Yes (Hospitalization)
  Sender: FDA-Public Use
  Company Number: FR-AMGEN-FRACT2012017104

PATIENT
  Age: 71 Year
  Sex: Male

DRUGS (10)
  1. VINBLASTINE SULFATE [Concomitant]
     Dosage: 4.9 MG, UNK
     Route: 042
     Dates: start: 20111129, end: 20120216
  2. NEUPOGEN [Concomitant]
     Dosage: UNK
     Route: 042
     Dates: start: 20111130
  3. RENUTRYL [Concomitant]
     Dosage: UNK
     Route: 048
     Dates: start: 20111214
  4. APREPITANT [Concomitant]
     Dosage: UNK
     Route: 048
     Dates: start: 20111214
  5. GRANISETRON [Concomitant]
     Dosage: UNK
     Route: 048
     Dates: start: 20111112
  6. DOXORUBICIN HCL [Concomitant]
     Dosage: 49 MG, UNK
     Route: 042
     Dates: start: 20111129, end: 20120216
  7. PANITUMUMAB [Suspect]
     Indication: TRANSITIONAL CELL CARCINOMA
     Dosage: 475 MG, UNK
     Route: 042
     Dates: start: 20111129
  8. CISPLATIN [Concomitant]
     Dosage: 114 MG, UNK
     Route: 042
     Dates: start: 20111129, end: 20120216
  9. METOCLOPRAMIDE [Concomitant]
     Dosage: UNK
     Route: 048
     Dates: start: 20111128
  10. METHOTREXATE [Concomitant]
     Dosage: 49 MG, UNK
     Route: 042
     Dates: start: 20111128, end: 20120215

REACTIONS (1)
  - APLASIA [None]
